FAERS Safety Report 16983430 (Version 1)
Quarter: 2019Q4

REPORT INFORMATION
  Report Type: Spontaneous
  Country: FR (occurrence: FR)
  Receive Date: 20191101
  Receipt Date: 20191101
  Transmission Date: 20200122
  Serious: Yes (Other)
  Sender: FDA-Public Use
  Company Number: FR-AMERICAN REGENT INC-2019002349

PATIENT
  Age: 79 Year
  Sex: Female
  Weight: 66 kg

DRUGS (1)
  1. FERINJECT [Suspect]
     Active Substance: FERRIC CARBOXYMALTOSE
     Indication: IRON DEFICIENCY ANAEMIA
     Dosage: 1 GRAM, 1 IN 1 TOTAL
     Route: 042
     Dates: start: 20191002, end: 201910

REACTIONS (3)
  - Extravasation [Recovered/Resolved]
  - Haematoma [Recovering/Resolving]
  - Tattoo [Not Recovered/Not Resolved]

NARRATIVE: CASE EVENT DATE: 20191002
